FAERS Safety Report 7620763-1 (Version None)
Quarter: 2011Q3

REPORT INFORMATION
  Report Type: 
  Country: None (occurrence: None)
  Receive Date: 20110719
  Receipt Date: 20110629
  Transmission Date: 20111222
  Serious: Yes (Other)
  Sender: FDA-Public Use
  Company Number: PHHY2011NL58757

PATIENT
  Sex: Female
  Weight: 69 kg

DRUGS (1)
  1. AMOXICILLIN [Suspect]
     Indication: SINUSITIS
     Dosage: 500 MG, TID
     Route: 048
     Dates: start: 20110531, end: 20110604

REACTIONS (3)
  - SWOLLEN TONGUE [None]
  - LYMPHADENOPATHY [None]
  - ANGIOEDEMA [None]
